FAERS Safety Report 8578712-8 (Version None)
Quarter: 2012Q3

REPORT INFORMATION
  Report Type: 
  Country: None (occurrence: None)
  Receive Date: 20120808
  Receipt Date: 20120709
  Transmission Date: 20120928
  Serious: Yes (Other)
  Sender: FDA-Public Use
  Company Number: BR-JNJFOC-20120708154

PATIENT
  Sex: Female

DRUGS (20)
  1. UNKNOWN MEDICATION [Concomitant]
     Route: 065
  2. TRAMADOL HYDROCHLORIDE [Suspect]
     Indication: PRODUCT USED FOR UNKNOWN INDICATION
     Route: 048
     Dates: start: 20120501
  3. LYRICA [Suspect]
     Indication: PAIN
     Route: 048
  4. TIZANIDINE HYDROCHLORIDE [Concomitant]
     Indication: MUSCLE SPASMS
     Route: 065
     Dates: start: 20100101
  5. TIZANIDINE HYDROCHLORIDE [Concomitant]
     Indication: MUSCLE RELAXANT THERAPY
     Route: 065
     Dates: start: 20120501
  6. TIZANIDINE HYDROCHLORIDE [Concomitant]
     Route: 065
     Dates: start: 20100101
  7. LYRICA [Suspect]
     Route: 048
     Dates: start: 20110101
  8. TIZANIDINE HYDROCHLORIDE [Concomitant]
     Route: 065
     Dates: start: 20120501
  9. CYMBALTA [Suspect]
     Indication: PAIN
     Route: 065
     Dates: start: 20110101
  10. CYMBALTA [Suspect]
     Route: 065
  11. DIPYRONE TAB [Concomitant]
     Indication: PAIN
     Route: 065
  12. TOPAMAX [Concomitant]
     Indication: PAIN
     Route: 048
     Dates: start: 20090101
  13. TRAMADOL HYDROCHLORIDE [Suspect]
     Route: 048
     Dates: start: 20100801
  14. LYRICA [Suspect]
     Indication: MULTIPLE SCLEROSIS
     Route: 048
  15. AMITRIPTYLINE HCL [Concomitant]
     Indication: PAIN
     Route: 048
  16. SEROQUEL [Concomitant]
     Indication: PAIN
     Route: 065
  17. LYRICA [Suspect]
     Route: 048
     Dates: start: 20110101
  18. TRAMADOL HCL [Concomitant]
     Indication: PAIN
     Route: 065
  19. INTERFERON BETA NOS [Suspect]
     Indication: PAIN
     Route: 065
  20. KETOCONAZOLE [Concomitant]
     Indication: PAIN
     Route: 065

REACTIONS (7)
  - DRUG DEPENDENCE [None]
  - THERAPY REGIMEN CHANGED [None]
  - INSOMNIA [None]
  - MUSCLE SPASMS [None]
  - FATIGUE [None]
  - SOMNOLENCE [None]
  - DRUG INEFFECTIVE [None]
